FAERS Safety Report 19578329 (Version 1)
Quarter: 2021Q3

REPORT INFORMATION
  Report Type: Spontaneous
  Country: US (occurrence: US)
  Receive Date: 20210719
  Receipt Date: 20210719
  Transmission Date: 20211014
  Serious: No
  Sender: FDA-Public Use
  Company Number: US-EMD SERONO-9249385

PATIENT
  Age: 37 Year
  Sex: Female

DRUGS (1)
  1. PERGOVERIS 300+150 IU SOLUTION FOR INJECTION IN PREFILLED PEN [Suspect]
     Active Substance: FOLLITROPIN\LUTROPIN ALFA
     Indication: PRODUCT USED FOR UNKNOWN INDICATION

REACTIONS (2)
  - Abdominal distension [Unknown]
  - Abdominal discomfort [Unknown]
